FAERS Safety Report 9403084 (Version 1)
Quarter: 2013Q3

REPORT INFORMATION
  Report Type: Spontaneous
  Country: US (occurrence: None)
  Receive Date: 20130715
  Receipt Date: 20130715
  Transmission Date: 20140515
  Serious: No
  Sender: FDA-Public Use
  Company Number: None

PATIENT
  Sex: Female

DRUGS (1)
  1. TECFIDERA [Suspect]
     Route: 048
     Dates: start: 20130517

REACTIONS (5)
  - Abdominal discomfort [None]
  - Flushing [None]
  - Burning sensation [None]
  - Ear discomfort [None]
  - Pruritus [None]
